FAERS Safety Report 4705783-9 (Version None)
Quarter: 2005Q2

REPORT INFORMATION
  Report Type: 
  Country: None (occurrence: None)
  Receive Date: 20050629
  Receipt Date: 20050620
  Transmission Date: 20051028
  Serious: Yes (Death)
  Sender: FDA-Public Use
  Company Number: 8010858

PATIENT
  Age: 28 Year
  Sex: Male
  Weight: 65 kg

DRUGS (3)
  1. KEPPRA [Suspect]
     Indication: EPILEPSY
     Dosage: 1500 MG 2/D PO
     Route: 048
     Dates: start: 20020130, end: 20050527
  2. OXCARBAZEPINE [Concomitant]
  3. CLOBAZAM [Concomitant]

REACTIONS (1)
  - DEATH [None]
